FAERS Safety Report 18039646 (Version 1)
Quarter: 2020Q3

REPORT INFORMATION
  Report Type: Spontaneous
  Country: AU (occurrence: AU)
  Receive Date: 20200717
  Receipt Date: 20200717
  Transmission Date: 20201103
  Serious: Yes (Life-Threatening, Hospitalization)
  Sender: FDA-Public Use
  Company Number: AU-MYLANLABS-2020M1065153

PATIENT
  Age: 34 Year
  Sex: Male

DRUGS (13)
  1. ROCURONIUM [Suspect]
     Active Substance: ROCURONIUM BROMIDE
     Indication: GENERAL ANAESTHESIA
     Route: 065
  2. EPINEPHRINE. [Suspect]
     Active Substance: EPINEPHRINE
     Indication: PULSELESS ELECTRICAL ACTIVITY
     Dosage: 20 MILLILITER, QH, 8 MG IN 100 ML 5% GLUCOSE; IMMEDIATELY POST ECLS
     Route: 065
  3. EPINEPHRINE. [Suspect]
     Active Substance: EPINEPHRINE
     Dosage: 7 MILLILITER, QH, 8 MG IN 100 ML 5% GLUCOSE; 24 HOURS POST ECLS
     Route: 065
  4. VASOPRESSIN. [Suspect]
     Active Substance: VASOPRESSIN
     Dosage: INITIAL DOSE ADMINISTERED PRIOR TO ECMO NOT STATED
     Route: 065
  5. HYDROCORTISONE. [Suspect]
     Active Substance: HYDROCORTISONE
     Indication: CARDIAC ARREST
     Dosage: CONTINUED FOR 5 DAYS AT UNKNOWN DOSE EVERY 6 HOURS AND WAS THEN WEANED OFF
     Route: 042
  6. EPINEPHRINE. [Suspect]
     Active Substance: EPINEPHRINE
     Dosage: INITIAL DOSE ADMINISTERED PRIOR TO ECMO NOT STATED
     Route: 065
  7. VASOPRESSIN. [Suspect]
     Active Substance: VASOPRESSIN
     Indication: CARDIAC ARREST
     Dosage: 1.2 INTERNATIONAL UNIT, QH, 60 U IN 60ML OF 5% GLUCOSE; 1.2 U/HOUR AT 24H POST ECLS
     Route: 065
  8. EPINEPHRINE. [Suspect]
     Active Substance: EPINEPHRINE
     Indication: CARDIAC ARREST
     Dosage: 15 MILLILITER, QH, 8 MG IN 100 ML 5% GLUCOSE; 12 HOURS POST ECLS
     Route: 065
  9. EPINEPHRINE. [Suspect]
     Active Substance: EPINEPHRINE
     Dosage: DOSE WAS GRADUALLY DECREASED AFTER HIS CONDITION STABILISED
     Route: 065
  10. HYDROCORTISONE. [Suspect]
     Active Substance: HYDROCORTISONE
     Indication: PULSELESS ELECTRICAL ACTIVITY
     Dosage: INITIAL DOSE NOT STATED
     Route: 065
  11. VASOPRESSIN. [Suspect]
     Active Substance: VASOPRESSIN
     Dosage: DOSE WAS GRADUALLY DECREASED AFTER HIS CONDITION STABILISED
     Route: 065
  12. VASOPRESSIN. [Suspect]
     Active Substance: VASOPRESSIN
     Indication: PULSELESS ELECTRICAL ACTIVITY
     Dosage: 2.4 INTERNATIONAL UNIT, QH, 60 U IN 60ML OF 5% GLUCOSE; 2.4 U/HOUR AT IMMEDIATELY POST ECLS
     Route: 065
  13. GLUCOSE [Concomitant]
     Active Substance: DEXTROSE
     Indication: PRODUCT USED FOR UNKNOWN INDICATION
     Dosage: USED AS SOLVENT FOR ADRENALINE AND VASOPRESSIN
     Route: 065

REACTIONS (4)
  - Pulseless electrical activity [Recovered/Resolved]
  - Hypersensitivity [Recovered/Resolved]
  - Treatment failure [Recovered/Resolved]
  - Cardiac arrest [Recovered/Resolved]
